FAERS Safety Report 7575528-6 (Version None)
Quarter: 2011Q2

REPORT INFORMATION
  Report Type: 
  Country: None (occurrence: None)
  Receive Date: 20110627
  Receipt Date: 20110613
  Transmission Date: 20111010
  Serious: Yes (Hospitalization, Other)
  Sender: FDA-Public Use
  Company Number: US-ELI_LILLY_AND_COMPANY-US201106005528

PATIENT
  Sex: Male

DRUGS (13)
  1. COUMADIN [Concomitant]
     Dosage: 5 MG, QD
  2. LEVOTHYROXINE SODIUM [Concomitant]
     Indication: HYPOTHYROIDISM
     Dosage: UNK
  3. CARVEDILOL [Concomitant]
     Dosage: 12.5 MG, QD
  4. ASPIRIN [Concomitant]
     Dosage: 81 MG, UNK
  5. BETA BLOCKING AGENTS [Concomitant]
     Dosage: UNK
  6. BENADRYL [Concomitant]
     Indication: SINUSITIS
  7. SIMVASTATIN [Concomitant]
     Indication: BLOOD CHOLESTEROL INCREASED
     Dosage: UNK
  8. QUINAPRIL HCL [Concomitant]
     Dosage: 20 MG, UNK
  9. CIALIS [Suspect]
     Indication: ERECTILE DYSFUNCTION
     Dosage: 20 MG, SINGLE
     Dates: start: 20110611, end: 20110611
  10. ATORVASTATIN CALCIUM [Concomitant]
     Indication: BLOOD CHOLESTEROL INCREASED
     Dosage: UNK
  11. CALCIUM CHANNEL BLOCKERS [Concomitant]
     Dosage: UNK
  12. NORVASC [Concomitant]
     Dosage: UNK
  13. TREMADOL [Concomitant]
     Indication: PAIN

REACTIONS (15)
  - BLOOD PRESSURE INCREASED [None]
  - APHASIA [None]
  - FALL [None]
  - HAEMORRHAGE [None]
  - FATIGUE [None]
  - NAUSEA [None]
  - CEREBROVASCULAR ACCIDENT [None]
  - GAIT DISTURBANCE [None]
  - TREMOR [None]
  - DYSARTHRIA [None]
  - COORDINATION ABNORMAL [None]
  - DYSPHAGIA [None]
  - MALAISE [None]
  - EXCORIATION [None]
  - DRUG INEFFECTIVE [None]
